FAERS Safety Report 8335887-3 (Version None)
Quarter: 2012Q2

REPORT INFORMATION
  Report Type: 
  Country: None (occurrence: None)
  Receive Date: 20120504
  Receipt Date: 20120501
  Transmission Date: 20120825
  Serious: No
  Sender: FDA-Public Use
  Company Number: US-PFIZER INC-2012108142

PATIENT
  Sex: Male

DRUGS (6)
  1. RANITIDINE [Concomitant]
     Indication: GASTROOESOPHAGEAL REFLUX DISEASE
     Dosage: 300 MG, DAILY AT NIGHT
  2. PROTONIX [Concomitant]
     Indication: GASTROOESOPHAGEAL REFLUX DISEASE
     Dosage: UNK
  3. TOVIAZ [Suspect]
     Indication: AUTOMATIC BLADDER
     Dosage: 8 MG, DAILY
     Dates: start: 20090101, end: 20120101
  4. TOVIAZ [Suspect]
     Dosage: 8 MG, DAILY
     Dates: start: 20120401
  5. VITAMIN C [Concomitant]
     Indication: ANAEMIA
     Dosage: 500 MG, 2X/DAY
  6. FERROUS GLUCONATE [Concomitant]
     Indication: ANAEMIA
     Dosage: 38 MG, 2X/DAY
     Route: 048

REACTIONS (1)
  - DRUG INEFFECTIVE [None]
